FAERS Safety Report 8225567-7 (Version None)
Quarter: 2012Q1

REPORT INFORMATION
  Report Type: 
  Country: None (occurrence: None)
  Receive Date: 20120321
  Receipt Date: 20120313
  Transmission Date: 20120608
  Serious: Yes (Other)
  Sender: FDA-Public Use
  Company Number: CHPA2012GB004882

PATIENT
  Sex: Female

DRUGS (2)
  1. SCOPOLAMINE [Suspect]
     Dosage: UNK, UNK
     Route: 062
     Dates: start: 20111101, end: 20111101
  2. SCOPOLAMINE [Suspect]
     Dosage: UNK, UNK
     Route: 062
     Dates: start: 20120101, end: 20120101

REACTIONS (3)
  - PAIN [None]
  - THERMAL BURN [None]
  - CRYING [None]
